FAERS Safety Report 10700187 (Version 2)
Quarter: 2015Q1

REPORT INFORMATION
  Report Type: Spontaneous
  Country: US (occurrence: US)
  Receive Date: 20150109
  Receipt Date: 20150216
  Transmission Date: 20150721
  Serious: No
  Sender: FDA-Public Use
  Company Number: US-PFIZER INC-2015005875

PATIENT
  Age: 65 Year
  Sex: Female

DRUGS (1)
  1. SILVADENE [Suspect]
     Active Substance: SILVER SULFADIAZINE
     Dosage: UNK

REACTIONS (2)
  - Drug hypersensitivity [Unknown]
  - Burning sensation [Unknown]
